FAERS Safety Report 6018752-6 (Version None)
Quarter: 2008Q4

REPORT INFORMATION
  Report Type: 
  Country: None (occurrence: None)
  Receive Date: 20081223
  Receipt Date: 20081219
  Transmission Date: 20090506
  Serious: Yes (Hospitalization, Disabling)
  Sender: FDA-Public Use
  Company Number: UG-GILEAD-2006-0009263

PATIENT
  Sex: Female
  Weight: 65 kg

DRUGS (4)
  1. TENOFOVIR DISOPROXIL FUMARATE [Suspect]
     Indication: HIV INFECTION
     Dates: start: 20030820, end: 20051108
  2. 3TC [Suspect]
     Indication: HIV INFECTION
  3. EFAVIRENZ [Suspect]
     Indication: HIV INFECTION
     Dates: start: 20040217
  4. COTRIM [Suspect]
     Dates: start: 20030820

REACTIONS (2)
  - OSTEOPENIA [None]
  - SPINAL COMPRESSION FRACTURE [None]
